FAERS Safety Report 24717650 (Version 1)
Quarter: 2024Q4

REPORT INFORMATION
  Report Type: Report from Study
  Country: US (occurrence: US)
  Receive Date: 20241210
  Receipt Date: 20241210
  Transmission Date: 20250114
  Serious: Yes (Other)
  Sender: ABBVIE
  Company Number: US-ABBVIE-6038482

PATIENT
  Age: 72 Year
  Sex: Female

DRUGS (1)
  1. CREON [Suspect]
     Active Substance: PANCRELIPASE AMYLASE\PANCRELIPASE LIPASE\PANCRELIPASE PROTEASE
     Indication: Product used for unknown indication
     Route: 048
     Dates: start: 20240828

REACTIONS (4)
  - Cholecystectomy [Recovered/Resolved]
  - Pancreatectomy [Recovered/Resolved]
  - Colectomy [Recovered/Resolved]
  - Biliary tract operation [Recovered/Resolved]

NARRATIVE: CASE EVENT DATE: 20241001
